FAERS Safety Report 19264562 (Version 1)
Quarter: 2021Q2

REPORT INFORMATION
  Report Type: Spontaneous
  Country: DE (occurrence: DE)
  Receive Date: 20210517
  Receipt Date: 20210517
  Transmission Date: 20210717
  Serious: No
  Sender: FDA-Public Use
  Company Number: DE-ALKEM LABORATORIES LIMITED-DE-ALKEM-2021-01736

PATIENT
  Age: 59 Year
  Sex: Female
  Weight: 94 kg

DRUGS (2)
  1. SALBUTAMOL [Suspect]
     Active Substance: ALBUTEROL
     Indication: ASTHMA
     Dosage: 2 DOSAGE FORM (EVERY 1 DAY)
     Route: 055
     Dates: start: 2015, end: 202102
  2. PREGABALIN CAPSULES [Suspect]
     Active Substance: PREGABALIN
     Indication: NEURALGIA
     Dosage: 2 DOSAGE FORM (EVERY 1 DAY)
     Route: 048
     Dates: start: 202010

REACTIONS (1)
  - Dyskinesia [Recovered/Resolved]
